FAERS Safety Report 7091162-9 (Version None)
Quarter: 2010Q4

REPORT INFORMATION
  Report Type: 
  Country: None (occurrence: None)
  Receive Date: 20101109
  Receipt Date: 20101027
  Transmission Date: 20110411
  Serious: Yes (Hospitalization)
  Sender: FDA-Public Use
  Company Number: PHHY2010JP66241

PATIENT
  Sex: Female

DRUGS (10)
  1. TEGRETOL [Suspect]
     Indication: TRIGEMINAL NEURALGIA
     Dosage: 200 MG DAILY
     Route: 048
     Dates: start: 20100830, end: 20100923
  2. TEGRETOL [Suspect]
     Dosage: UNK
  3. CLARITHROMYCIN [Suspect]
     Dosage: 400 MG DAILY
     Route: 048
     Dates: start: 20100906, end: 20100922
  4. SELBEX [Concomitant]
     Indication: SINUSITIS
     Dosage: 100 MG
     Route: 048
     Dates: start: 20100830, end: 20100923
  5. IRZAIM [Concomitant]
     Indication: SINUSITIS
     Dosage: 20 MG
     Route: 048
     Dates: start: 20100830, end: 20100923
  6. HOKUNALIN [Concomitant]
     Indication: ASTHMA
     Dosage: UNK
     Dates: start: 20100830, end: 20100923
  7. EMPERACIN [Concomitant]
     Indication: ASTHMA
     Dosage: 2 DF, UNK
     Dates: start: 20100830, end: 20100923
  8. THEOLONG [Concomitant]
     Indication: ASTHMA
     Dosage: 200 MG, UNK
     Route: 048
     Dates: start: 20100830, end: 20100923
  9. FAMOTIDINE [Concomitant]
     Indication: GASTRITIS
     Dosage: 20 MG, UNK
     Route: 048
     Dates: start: 20100902
  10. NAUZELIN [Concomitant]
     Dosage: 20 MG
     Route: 048
     Dates: start: 20100902, end: 20100923

REACTIONS (9)
  - ALANINE AMINOTRANSFERASE INCREASED [None]
  - DRUG ERUPTION [None]
  - DRUG RASH WITH EOSINOPHILIA AND SYSTEMIC SYMPTOMS [None]
  - ERYTHEMA [None]
  - GAMMA-GLUTAMYLTRANSFERASE INCREASED [None]
  - LYMPHOCYTE COUNT DECREASED [None]
  - MONOCYTE COUNT INCREASED [None]
  - PAIN [None]
  - RASH [None]
